FAERS Safety Report 4844617-9 (Version None)
Quarter: 2005Q4

REPORT INFORMATION
  Report Type: 
  Country: None (occurrence: None)
  Receive Date: 20051125
  Receipt Date: 20051116
  Transmission Date: 20060501
  Serious: Yes (Other)
  Sender: FDA-Public Use
  Company Number: HQWYE629218NOV05

PATIENT
  Age: 21 Year
  Sex: Female

DRUGS (5)
  1. EFFEXOR XR [Suspect]
     Indication: ANXIETY
     Dosage: 37.5 MG 1X PER 1 DAY, ORAL
     Route: 048
     Dates: start: 20051027
  2. EFFEXOR XR [Suspect]
     Indication: PANIC ATTACK
     Dosage: 37.5 MG 1X PER 1 DAY, ORAL
     Route: 048
     Dates: start: 20051027
  3. EFFEXOR XR [Suspect]
     Indication: PROPHYLAXIS
     Dosage: 37.5 MG 1X PER 1 DAY, ORAL
     Route: 048
     Dates: start: 20051027
  4. ATIVAN [Suspect]
  5. SYNTHROID [Concomitant]

REACTIONS (3)
  - DRUG EXPOSURE DURING PREGNANCY [None]
  - INSOMNIA [None]
  - PROLONGED PREGNANCY [None]
